FAERS Safety Report 16963910 (Version 1)
Quarter: 2019Q4

REPORT INFORMATION
  Report Type: Spontaneous
  Country: US (occurrence: US)
  Receive Date: 20190909
  Receipt Date: 20190909
  Transmission Date: 20200122
  Serious: No
  Sender: FDA-Public Use
  Company Number: None

PATIENT
  Age: 57 Year
  Sex: Male

DRUGS (1)
  1. SOFOSBUVIR/VELSPATASVIR 400-100MG [Suspect]
     Active Substance: SOFOSBUVIR\VELPATASVIR
     Route: 048
     Dates: start: 201908

REACTIONS (5)
  - Depression [None]
  - Dizziness [None]
  - Vision blurred [None]
  - Headache [None]
  - Rhinorrhoea [None]

NARRATIVE: CASE EVENT DATE: 20190909
